FAERS Safety Report 20039460 (Version 3)
Quarter: 2021Q4

REPORT INFORMATION
  Report Type: Report from Study
  Country: US (occurrence: US)
  Receive Date: 20211105
  Receipt Date: 20211118
  Transmission Date: 20220303
  Serious: No
  Sender: FDA-Public Use
  Company Number: US-NOVARTISTESTPH-NVSC2021US253220

PATIENT
  Sex: Male

DRUGS (2)
  1. ENTRESTO [Suspect]
     Active Substance: SACUBITRIL\VALSARTAN
     Indication: Cardiac failure congestive
     Dosage: 1 DF, BID (24/26 MG)
     Route: 048
     Dates: start: 20211103
  2. ENTRESTO [Suspect]
     Active Substance: SACUBITRIL\VALSARTAN
     Dosage: 1 DF (97/103 MG)
     Route: 048

REACTIONS (7)
  - Cold sweat [Unknown]
  - Memory impairment [Unknown]
  - Blood pressure decreased [Unknown]
  - Hypotension [Unknown]
  - Dizziness [Unknown]
  - Tremor [Unknown]
  - Visual impairment [Not Recovered/Not Resolved]
